FAERS Safety Report 8416773-7 (Version None)
Quarter: 2012Q2

REPORT INFORMATION
  Report Type: 
  Country: None (occurrence: None)
  Receive Date: 20120606
  Receipt Date: 20120529
  Transmission Date: 20120825
  Serious: Yes (Other)
  Sender: FDA-Public Use
  Company Number: FR-MERCK-1206USA00032

PATIENT
  Age: 20 Year
  Sex: Male

DRUGS (1)
  1. PROPECIA [Suspect]
     Indication: ALOPECIA
     Route: 048
     Dates: start: 20080101, end: 20090115

REACTIONS (3)
  - LOSS OF LIBIDO [None]
  - SEMEN ANALYSIS ABNORMAL [None]
  - ERECTILE DYSFUNCTION [None]
